FAERS Safety Report 9825633 (Version 1)
Quarter: 2013Q4

REPORT INFORMATION
  Report Type: Spontaneous
  Country: US (occurrence: None)
  Receive Date: 20131028
  Receipt Date: 20131028
  Transmission Date: 20140711
  Serious: Yes (Other)
  Sender: FDA-Public Use
  Company Number: 2013US002362

PATIENT
  Age: 56 Year
  Sex: Female
  Weight: 91 kg

DRUGS (15)
  1. ICLUSIG [Suspect]
     Indication: CHRONIC MYELOID LEUKAEMIA
     Route: 048
     Dates: start: 20130717
  2. SEROQUEL (QUETIAPINE FUMARATE) [Concomitant]
  3. CELEBREX (CELECOXIB) [Concomitant]
  4. REMERON (MIRTAZAPINE) [Concomitant]
  5. ACYICLOVIR (ACYCLOVIR) [Concomitant]
  6. ALPRAZOLAM (ALPRAZOLAM) [Concomitant]
  7. FIORICET (BUTALBITAL, CAFFEINE, PARACETAMOL) [Concomitant]
  8. PERCOCET (OXYCODONE HYDROCHLORIDE, PARACETAMOL) [Concomitant]
  9. VITAMIN C (VITAMIN C) [Concomitant]
  10. CALCIUM (CALCIUM) [Concomitant]
  11. SPRYCEL (DASATINIB MONOHYDRATE) [Concomitant]
  12. COLACE [Concomitant]
  13. DOXYCYCLINE (DOXYICYCLINE) [Concomitant]
  14. MELATONIN (MELATONIN) [Concomitant]
  15. MULTIVITAMIN (VITAMINS NOS) [Concomitant]

REACTIONS (4)
  - Rosacea [None]
  - Myalgia [None]
  - Arthralgia [None]
  - Rash [None]
